FAERS Safety Report 15718442 (Version 5)
Quarter: 2021Q2

REPORT INFORMATION
  Report Type: Report from Study
  Country: US (occurrence: US)
  Receive Date: 20181213
  Receipt Date: 20210514
  Transmission Date: 20210716
  Serious: Yes (Hospitalization, Other)
  Sender: FDA-Public Use
  Company Number: US-UCBSA-2018053336

PATIENT
  Age: 36 Year
  Sex: Female
  Weight: 54 kg

DRUGS (15)
  1. CYMBALTA [Concomitant]
     Active Substance: DULOXETINE HYDROCHLORIDE
     Indication: FIBROMYALGIA
     Dosage: 30 MG, ONCE DAILY (QD)
     Route: 048
     Dates: start: 20150701
  2. METHOTREXATE. [Concomitant]
     Active Substance: METHOTREXATE
     Indication: RHEUMATOID ARTHRITIS
     Dosage: 11 MG, WEEKLY (QW)
     Route: 048
     Dates: start: 20110701, end: 20180630
  3. FLUCONAZOLE. [Concomitant]
     Active Substance: FLUCONAZOLE
     Dosage: 200 MG, ONCE DAILY (QD)
     Route: 048
     Dates: start: 20181126, end: 20181126
  4. VITAMIN D WITH OMEGA 3 [Concomitant]
     Indication: PRODUCT USED FOR UNKNOWN INDICATION
  5. FOLIC ACID. [Concomitant]
     Active Substance: FOLIC ACID
     Indication: FUNGAL INFECTION
     Dosage: 5 MG, ONCE DAILY (QD)
     Route: 048
     Dates: start: 20180525
  6. CANNABIDIOL [Concomitant]
     Active Substance: CANNABIDIOL
     Indication: PAIN MANAGEMENT
     Dosage: 0.6 ML, ONCE DAILY (QD)
     Route: 048
     Dates: start: 20180601, end: 20180630
  7. TYLENOL EXTRA STRENGTH [Concomitant]
     Active Substance: ACETAMINOPHEN
     Indication: HEADACHE
  8. CALCIUM [Concomitant]
     Active Substance: CALCIUM
     Indication: PRODUCT USED FOR UNKNOWN INDICATION
     Dosage: UNK
     Route: 048
     Dates: start: 20180525, end: 20180901
  9. PREDNISONE. [Concomitant]
     Active Substance: PREDNISONE
     Indication: RHEUMATOID ARTHRITIS
  10. PRENATAL VITAMINS [Concomitant]
     Active Substance: VITAMINS
     Indication: PRODUCT USED FOR UNKNOWN INDICATION
  11. TYLENOL EXTRA STRENGTH [Concomitant]
     Active Substance: ACETAMINOPHEN
     Indication: ARTHRALGIA
  12. CERTOLIZUMAB PEGOL RA [Suspect]
     Active Substance: CERTOLIZUMAB PEGOL
     Indication: RHEUMATOID ARTHRITIS
     Dosage: 200 MG, 2X/MONTH
     Route: 058
     Dates: start: 20110701, end: 20190208
  13. FLUCONAZOLE. [Concomitant]
     Active Substance: FLUCONAZOLE
     Indication: FUNGAL INFECTION
     Dosage: 200 MG, ONCE DAILY (QD)
     Route: 048
     Dates: start: 20180725, end: 20180725
  14. VITAMIN B COMPLEX [Concomitant]
     Active Substance: CYANOCOBALAMIN\DEXPANTHENOL\NIACINAMIDE\PYRIDOXINE HYDROCHLORIDE\RIBOFLAVIN 5^-PHOSPHATE SODIUM\THIAMINE HYDROCHLORIDE\VITAMIN B COMPLEX
     Indication: PRODUCT USED FOR UNKNOWN INDICATION
  15. VITAMIN D [Concomitant]
     Active Substance: VITAMIN D NOS
     Indication: PRODUCT USED FOR UNKNOWN INDICATION

REACTIONS (9)
  - Eclampsia [Unknown]
  - Maternal exposure before pregnancy [Unknown]
  - Injury [Unknown]
  - Vaginal infection [Recovered/Resolved]
  - Cardiac failure [Unknown]
  - Rheumatoid arthritis [Unknown]
  - Kidney infection [Recovered/Resolved]
  - Road traffic accident [Recovered/Resolved]
  - Pulmonary oedema [Unknown]

NARRATIVE: CASE EVENT DATE: 20180608
